FAERS Safety Report 5764644-7 (Version None)
Quarter: 2008Q2

REPORT INFORMATION
  Report Type: 
  Country: None (occurrence: None)
  Receive Date: 20080611
  Receipt Date: 20080602
  Transmission Date: 20081010
  Serious: Yes (Other)
  Sender: FDA-Public Use
  Company Number: US-BAYER-200819746GPV

PATIENT
  Age: 38 Year
  Sex: Female

DRUGS (3)
  1. FLUDARABINE PHOSPHATE [Suspect]
     Indication: B-CELL LYMPHOMA
     Route: 065
     Dates: start: 19990101, end: 19990101
  2. RITUXIMAB [Suspect]
     Indication: B-CELL LYMPHOMA
     Route: 065
     Dates: start: 19990101, end: 19990101
  3. CYCLOPHOSPHAMIDE [Suspect]
     Indication: B-CELL LYMPHOMA
     Route: 065
     Dates: start: 19990101, end: 19990101

REACTIONS (3)
  - CD4 LYMPHOCYTES DECREASED [None]
  - HYPOGAMMAGLOBULINAEMIA [None]
  - SINUSITIS [None]
